FAERS Safety Report 4554745-3 (Version None)
Quarter: 2005Q1

REPORT INFORMATION
  Report Type: 
  Country: None (occurrence: None)
  Receive Date: 20050118
  Receipt Date: 20041220
  Transmission Date: 20050727
  Serious: Yes (Other)
  Sender: FDA-Public Use
  Company Number: US-GLAXOSMITHKLINE-A0538061A

PATIENT
  Age: 10 Year
  Sex: Male

DRUGS (3)
  1. LAMICTAL [Suspect]
     Indication: BIPOLAR DISORDER
     Dosage: 12.5MG PER DAY
     Route: 048
     Dates: start: 20041205, end: 20041215
  2. DEPAKOTE [Concomitant]
     Dosage: 1250MG PER DAY
  3. ABILIFY [Concomitant]
     Dosage: 10MG TWICE PER DAY

REACTIONS (8)
  - BAND NEUTROPHIL COUNT INCREASED [None]
  - BLOOD DISORDER [None]
  - HEPATIC ENZYME INCREASED [None]
  - LIP BLISTER [None]
  - LYMPHOCYTE COUNT DECREASED [None]
  - PLATELET COUNT DECREASED [None]
  - PROTEIN TOTAL DECREASED [None]
  - RASH [None]
